FAERS Safety Report 9441507 (Version 3)
Quarter: 2015Q1

REPORT INFORMATION
  Report Type: Report from Study
  Country: US (occurrence: US)
  Receive Date: 20130805
  Receipt Date: 20150330
  Transmission Date: 20150721
  Serious: Yes (Other)
  Sender: FDA-Public Use
  Company Number: US-ROCHE-1254923

PATIENT

DRUGS (2)
  1. RITUXIMAB [Suspect]
     Active Substance: RITUXIMAB
     Indication: NON-HODGKIN^S LYMPHOMA
     Dosage: ON DAY 1 OF A 21-DAY CYCLE
     Route: 042
  2. VORINOSTAT [Suspect]
     Active Substance: VORINOSTAT
     Indication: NON-HODGKIN^S LYMPHOMA
     Route: 048

REACTIONS (27)
  - Dehydration [Unknown]
  - Diarrhoea [Unknown]
  - Lymphopenia [Unknown]
  - Neutropenia [Unknown]
  - Thrombocytopenia [Unknown]
  - Thrombosis [Unknown]
  - Kidney infection [Unknown]
  - Alanine aminotransferase increased [Unknown]
  - Hypoxia [Unknown]
  - Pneumonitis [Unknown]
  - Pulmonary embolism [Recovered/Resolved]
  - Anaemia [Unknown]
  - Fatigue [Unknown]
  - Chills [Unknown]
  - Urinary tract infection [Unknown]
  - Aspartate aminotransferase increased [Unknown]
  - Blood potassium decreased [Unknown]
  - Hyperglycaemia [Unknown]
  - Diverticulitis [Unknown]
  - Localised oedema [Unknown]
  - Vascular access complication [Unknown]
  - Sepsis [Unknown]
  - Syncope [Unknown]
  - Hypotension [Unknown]
  - Hypophosphataemia [Unknown]
  - Pneumonia [Unknown]
  - Muscular weakness [Unknown]
